FAERS Safety Report 14226420 (Version 1)
Quarter: 2017Q4

REPORT INFORMATION
  Report Type: Spontaneous
  Country: IN (occurrence: IN)
  Receive Date: 20171127
  Receipt Date: 20171127
  Transmission Date: 20180321
  Serious: Yes (Other)
  Sender: FDA-Public Use
  Company Number: IN-SA-2017SA174738

PATIENT
  Age: 27 Year
  Sex: Female

DRUGS (4)
  1. ONDANSETRON HYDROCHLORIDE. [Suspect]
     Active Substance: ONDANSETRON HYDROCHLORIDE
     Indication: NAUSEA
     Route: 048
  2. LEVOCETIRIZINE [Suspect]
     Active Substance: LEVOCETIRIZINE
     Indication: FIXED ERUPTION
     Route: 065
  3. LEVOCETIRIZINE [Suspect]
     Active Substance: LEVOCETIRIZINE
     Indication: POST INFLAMMATORY PIGMENTATION CHANGE
     Route: 065
  4. ONDANSETRON HYDROCHLORIDE. [Suspect]
     Active Substance: ONDANSETRON HYDROCHLORIDE
     Indication: VOMITING
     Route: 048

REACTIONS (8)
  - Erythema [Recovered/Resolved with Sequelae]
  - Off label use [Unknown]
  - Fixed eruption [Recovered/Resolved with Sequelae]
  - Pruritus [Recovered/Resolved with Sequelae]
  - Skin discolouration [Recovering/Resolving]
  - Skin plaque [Recovered/Resolved with Sequelae]
  - Macule [Recovered/Resolved with Sequelae]
  - Skin hyperpigmentation [Recovering/Resolving]
